FAERS Safety Report 24288956 (Version 1)
Quarter: 2024Q3

REPORT INFORMATION
  Report Type: Spontaneous
  Country: BR (occurrence: BR)
  Receive Date: 20240906
  Receipt Date: 20240906
  Transmission Date: 20241017
  Serious: Yes (Hospitalization, Other)
  Sender: GENMAB
  Company Number: BR-ABBVIE-5901256

PATIENT
  Age: 92 Year
  Sex: Female

DRUGS (1)
  1. EPCORITAMAB [Suspect]
     Active Substance: EPCORITAMAB
     Indication: Diffuse large B-cell lymphoma
     Dosage: UNK
     Route: 058

REACTIONS (3)
  - Diffuse large B-cell lymphoma [Unknown]
  - COVID-19 [Recovering/Resolving]
  - Therapy non-responder [Unknown]
